FAERS Safety Report 7830090-5 (Version None)
Quarter: 2011Q4

REPORT INFORMATION
  Report Type: 
  Country: None (occurrence: None)
  Receive Date: 20111018
  Receipt Date: 20111006
  Transmission Date: 20120403
  Serious: Yes (Other)
  Sender: FDA-Public Use
  Company Number: 1000024509

PATIENT
  Age: 73 Year
  Sex: Female

DRUGS (19)
  1. ALDOMET (TRIHEXYPHENIDYL HYDROCHLORIDE) (TRIHEXYPHENIDYL HYDROCHLORIDE [Concomitant]
  2. ALOSENN (SENNA ALEXANDRINA) (SENNA ALEXANDRINA) [Concomitant]
  3. ROHYPNOL (FLUNITRAZEPAM) (FLUNITRAZEPAM) [Concomitant]
  4. MEMANTINE [Suspect]
     Indication: DEMENTIA WITH LEWY BODIES
     Dosage: 2.5 MG (2.5 MG, 1 IN 1 D),ORAL
     Route: 048
     Dates: start: 20110915
  5. ALMARL (AROTINOLOL HYDROCHLORIDE) (AROTINOLOL HYDROCHLORIDE) [Concomitant]
  6. EPADEL (ETHYL ICOSAPENTATE) (ETHYL ECOSAPENTATE) [Concomitant]
  7. ARICEPT [Concomitant]
  8. MEMANTINE [Suspect]
     Indication: DEMENTIA WITH LEWY BODIES
     Dosage: 10 MG (10 MG,1 IN 1 D),ORAL
     Route: 048
     Dates: start: 20110722, end: 20110818
  9. NORVASC [Concomitant]
  10. CELECOX (CELECOXIB) (CELECOXIB) [Concomitant]
  11. RASILEX (ALISKIREN FUMARATE) (ALISKIREN FUMARATE) [Concomitant]
  12. UNISIA HD (CANDESARTAN CILEXETIL, AMLODIPINE BESILATE) (CANDESARTAN CI [Concomitant]
  13. STAYBLA (IMIDAFENACIN) (IMIDAFENACIN) [Concomitant]
  14. MEMANTINE [Suspect]
     Indication: DEMENTIA WITH LEWY BODIES
     Dosage: SEE IMAGE
     Route: 048
     Dates: start: 20110701, end: 20110707
  15. MEMANTINE [Suspect]
     Indication: DEMENTIA WITH LEWY BODIES
     Dosage: SEE IMAGE
     Route: 048
     Dates: start: 20110715, end: 20110721
  16. MEMANTINE [Suspect]
     Indication: DEMENTIA WITH LEWY BODIES
     Dosage: SEE IMAGE
     Route: 048
     Dates: start: 20110708, end: 20110714
  17. YOKUKAN-SAN (HERBAL EXTRACT NOS) (HERBAL EXTRACT NOS) [Concomitant]
  18. LEPRINTON (LEVODOPA, CARBIDOPA) (LEVODOPA, CARBIDOPA) [Concomitant]
  19. KAMA (MAGNESIUM OXIDE) (MAGNESIUM OXIDE) [Concomitant]

REACTIONS (6)
  - MASKED FACIES [None]
  - PARKINSONISM [None]
  - TREMOR [None]
  - GAIT DISTURBANCE [None]
  - HALLUCINATION, VISUAL [None]
  - ABASIA [None]
